FAERS Safety Report 5492887-9 (Version None)
Quarter: 2007Q4

REPORT INFORMATION
  Report Type: 
  Country: None (occurrence: None)
  Receive Date: 20071023
  Receipt Date: 20071015
  Transmission Date: 20080405
  Serious: Yes (Hospitalization)
  Sender: FDA-Public Use
  Company Number: US-ASTRAZENECA-2007UW23945

PATIENT
  Age: 79 Year
  Sex: Female
  Weight: 71.2 kg

DRUGS (2)
  1. NEXIUM [Suspect]
     Indication: ULCER
     Route: 048
     Dates: end: 20070801
  2. NEXIUM [Suspect]
     Route: 048

REACTIONS (2)
  - CARDIAC FAILURE [None]
  - CARDIAC PACEMAKER INSERTION [None]
